FAERS Safety Report 12575478 (Version 2)
Quarter: 2017Q2

REPORT INFORMATION
  Report Type: Report from Study
  Country: US (occurrence: US)
  Receive Date: 20160720
  Receipt Date: 20170620
  Transmission Date: 20170830
  Serious: Yes (Hospitalization, Other)
  Sender: FDA-Public Use
  Company Number: US-AMGEN-USASP2016091763

PATIENT
  Age: 65 Year
  Sex: Female

DRUGS (1)
  1. ENBREL [Suspect]
     Active Substance: ETANERCEPT
     Indication: RHEUMATOID ARTHRITIS
     Dosage: 50 MG, QWK
     Route: 065
     Dates: start: 2006

REACTIONS (8)
  - Diabetic ulcer [Recovering/Resolving]
  - Staphylococcal infection [Recovering/Resolving]
  - Memory impairment [Not Recovered/Not Resolved]
  - Osteomyelitis [Unknown]
  - Pneumonia [Unknown]
  - Transient ischaemic attack [Unknown]
  - Musculoskeletal stiffness [Unknown]
  - Feeling abnormal [Unknown]

NARRATIVE: CASE EVENT DATE: 2016
